FAERS Safety Report 21709204 (Version 1)
Quarter: 2022Q4

REPORT INFORMATION
  Report Type: Spontaneous
  Country: FR (occurrence: FR)
  Receive Date: 20221210
  Receipt Date: 20221210
  Transmission Date: 20230112
  Serious: Yes (Other)
  Sender: FDA-Public Use
  Company Number: FR-AMGEN-FRASP2022210931

PATIENT
  Age: 21 Year
  Sex: Male

DRUGS (1)
  1. ADALIMUMAB [Suspect]
     Active Substance: ADALIMUMAB
     Indication: Crohn^s disease
     Dosage: UNK
     Route: 065

REACTIONS (3)
  - Multisystem inflammatory syndrome [Recovered/Resolved]
  - Gastroenteritis shigella [Recovered/Resolved]
  - Chronic recurrent multifocal osteomyelitis [Recovering/Resolving]
